FAERS Safety Report 12515046 (Version 1)
Quarter: 2016Q2

REPORT INFORMATION
  Report Type: Spontaneous
  Country: CA (occurrence: CA)
  Receive Date: 20160630
  Receipt Date: 20160630
  Transmission Date: 20160815
  Serious: Yes (Other)
  Sender: FDA-Public Use
  Company Number: CA-ASTRAZENECA-2016SE68571

PATIENT
  Age: 60 Year
  Sex: Female

DRUGS (3)
  1. CRESTOR [Suspect]
     Active Substance: ROSUVASTATIN CALCIUM
     Indication: HYPERCHOLESTEROLAEMIA
     Dosage: 40.0MG UNKNOWN
     Route: 048
  2. MULTIVITAMINE [Concomitant]
  3. COVERSYL [Concomitant]
     Active Substance: PERINDOPRIL

REACTIONS (4)
  - Epistaxis [Unknown]
  - Haematochezia [Unknown]
  - Diarrhoea [Unknown]
  - Thinking abnormal [Unknown]
